FAERS Safety Report 7552296-5 (Version None)
Quarter: 2011Q2

REPORT INFORMATION
  Report Type: 
  Country: None (occurrence: None)
  Receive Date: 20110616
  Receipt Date: 20110531
  Transmission Date: 20111010
  Serious: No
  Sender: FDA-Public Use
  Company Number: US-B.I. PHARMACEUTICALS,INC./RIDGEFIELD-2011-BP-09452BP

PATIENT
  Sex: Male

DRUGS (6)
  1. AMLODIPINE [Concomitant]
  2. PRADAXA [Suspect]
     Indication: ATRIAL FIBRILLATION
     Dosage: 300 MG
  3. MICARDIS HCT [Concomitant]
     Dosage: 80 MG
  4. SOTALOL HCL [Concomitant]
     Dosage: 10 MG
  5. DIGOXIN [Concomitant]
     Dosage: 0.25 MG
  6. SYNTHROID [Concomitant]
     Dosage: 0.88 MG

REACTIONS (1)
  - FATIGUE [None]
